FAERS Safety Report 20595349 (Version 1)
Quarter: 2022Q1

REPORT INFORMATION
  Report Type: Spontaneous
  Country: US (occurrence: None)
  Receive Date: 20220314
  Receipt Date: 20220314
  Transmission Date: 20220423
  Serious: No
  Sender: FDA-Public Use
  Company Number: None

PATIENT
  Age: 77 Year
  Sex: Female
  Weight: 96.75 kg

DRUGS (13)
  1. NEURONTIN [Suspect]
     Active Substance: GABAPENTIN
     Indication: Neuralgia
     Dosage: OTHER QUANTITY : 1 CAPSULE(S);?FREQUENCY : 3 TIMES A DAY;?
     Route: 048
     Dates: end: 20220311
  2. DONEPEZIL HCL (ARICEPT) [Concomitant]
  3. ASPIRIN [Concomitant]
     Active Substance: ASPIRIN
  4. GABAPENTIN [Concomitant]
     Active Substance: GABAPENTIN
  5. LEVOTHYROXINE (LEVOXYL) [Concomitant]
  6. LISINOPRIL [Concomitant]
     Active Substance: LISINOPRIL
  7. OMEPRAZOLE [Concomitant]
     Active Substance: OMEPRAZOLE
  8. MAGNESIUM [Concomitant]
     Active Substance: MAGNESIUM
  9. POTASSIUM [Concomitant]
     Active Substance: POTASSIUM
  10. QUNOL [Concomitant]
  11. HERBALS\TURMERIC [Concomitant]
     Active Substance: HERBALS\TURMERIC
  12. TYLENOL [Concomitant]
     Active Substance: ACETAMINOPHEN
  13. CALCIUM [Concomitant]
     Active Substance: CALCIUM

REACTIONS (8)
  - Gastric disorder [None]
  - Diarrhoea [None]
  - Asthenia [None]
  - Clumsiness [None]
  - Diarrhoea [None]
  - Dyspepsia [None]
  - Insomnia [None]
  - Decreased interest [None]

NARRATIVE: CASE EVENT DATE: 20220222
